FAERS Safety Report 11069340 (Version 1)
Quarter: 2015Q2

REPORT INFORMATION
  Report Type: Spontaneous
  Country: KR (occurrence: KR)
  Receive Date: 20150427
  Receipt Date: 20150427
  Transmission Date: 20150821
  Serious: Yes (Death)
  Sender: FDA-Public Use
  Company Number: PHHY2015KR049333

PATIENT
  Age: 6 Month
  Sex: Male
  Weight: 2.8 kg

DRUGS (2)
  1. PREDNISOLONE. [Suspect]
     Active Substance: PREDNISOLONE
     Indication: CONGENITAL APLASTIC ANAEMIA
     Route: 065
  2. OXYMETHOLONE [Suspect]
     Active Substance: OXYMETHOLONE
     Indication: CONGENITAL APLASTIC ANAEMIA
     Route: 065

REACTIONS (2)
  - Graft versus host disease [Fatal]
  - Sepsis [Fatal]
